FAERS Safety Report 8418096-9 (Version None)
Quarter: 2012Q2

REPORT INFORMATION
  Report Type: 
  Country: None (occurrence: None)
  Receive Date: 20120607
  Receipt Date: 20120529
  Transmission Date: 20120825
  Serious: Yes (Hospitalization, Other)
  Sender: FDA-Public Use
  Company Number: US-CELGENEUS-163-21880-07020804

PATIENT
  Sex: Male
  Weight: 77.18 kg

DRUGS (12)
  1. MULTI-VITAMIN [Concomitant]
     Route: 065
  2. DEPAKOTE ER [Concomitant]
     Dosage: 1500 MILLIGRAM
     Route: 065
  3. DECADRON [Suspect]
     Dosage: 20 MILLIGRAM
     Route: 065
  4. ALPRAZOLAM [Concomitant]
     Route: 065
  5. ASPIRIN [Concomitant]
     Route: 065
  6. REVLIMID [Suspect]
     Indication: MULTIPLE MYELOMA
     Dosage: 25 MILLIGRAM
     Route: 048
     Dates: start: 20020201
  7. ACYCLOVIR [Concomitant]
     Dosage: 400 MILLIGRAM
     Route: 065
     Dates: start: 20061101
  8. FOLIC ACID [Concomitant]
     Route: 065
     Dates: start: 20061101
  9. DECADRON [Suspect]
     Dosage: 40 MILLIGRAM
     Route: 065
     Dates: start: 20060701, end: 20070211
  10. BACTRIM DS [Concomitant]
     Route: 065
     Dates: start: 20061101
  11. REVLIMID [Suspect]
     Dosage: 10 MILLIGRAM
     Route: 048
  12. REVLIMID [Suspect]
     Dosage: 25 MILLIGRAM
     Route: 048
     Dates: start: 20070122

REACTIONS (7)
  - PANCYTOPENIA [None]
  - CONFUSIONAL STATE [None]
  - ANAEMIA [None]
  - PRESYNCOPE [None]
  - GRAND MAL CONVULSION [None]
  - PNEUMONIA [None]
  - VISION BLURRED [None]
